FAERS Safety Report 6866539-4 (Version None)
Quarter: 2010Q3

REPORT INFORMATION
  Report Type: 
  Country: None (occurrence: None)
  Receive Date: 20100722
  Receipt Date: 20100713
  Transmission Date: 20110219
  Serious: Yes (Other)
  Sender: FDA-Public Use
  Company Number: PHHY2010BR18830

PATIENT
  Sex: Female

DRUGS (1)
  1. GALVUS MET [Suspect]
     Dosage: 1000/50 MG

REACTIONS (3)
  - DIZZINESS [None]
  - FEELING ABNORMAL [None]
  - HYPERGLYCAEMIA [None]
